FAERS Safety Report 26101558 (Version 1)
Quarter: 2025Q4

REPORT INFORMATION
  Report Type: Report from Study
  Country: EU (occurrence: EU)
  Receive Date: 20251128
  Receipt Date: 20251128
  Transmission Date: 20260118
  Serious: Yes (Hospitalization)
  Sender: NOVARTIS
  Company Number: EU-002147023-NVSC2025IE183286

PATIENT
  Age: 75 Year
  Sex: Male

DRUGS (2)
  1. COSENTYX [Suspect]
     Active Substance: SECUKINUMAB
     Indication: Psoriatic arthropathy
     Dosage: 300 MG, (300MG ONCE A WEEK ON WEEKS 0,1,2,3,4 (5 WEEKLY DOSES) AND THEN ONCE MONTHLY)
     Route: 058
     Dates: start: 20251118
  2. COSENTYX [Suspect]
     Active Substance: SECUKINUMAB
     Indication: Psoriasis

REACTIONS (4)
  - Kidney infection [Unknown]
  - Illness [Unknown]
  - Blood urine present [Unknown]
  - Body temperature abnormal [Unknown]
